FAERS Safety Report 8833665 (Version 2)
Quarter: 2012Q4

REPORT INFORMATION
  Report Type: 
  Country: US (occurrence: US)
  Receive Date: 20121010
  Receipt Date: 20121207
  Transmission Date: 20130627
  Serious: Yes (Life-Threatening, Hospitalization)
  Sender: FDA-Public Use
  Company Number: US-B.I. PHARMACEUTICALS,INC./RIDGEFIELD-2012-BP-24366BP

PATIENT
  Age: 82 None
  Sex: Male
  Weight: 69.4 kg

DRUGS (7)
  1. PRADAXA [Suspect]
     Indication: ATRIAL FIBRILLATION
     Dosage: 300 mg
     Dates: start: 20120330, end: 20121003
  2. ASPIRIN [Suspect]
  3. MEDICATION NOT FURTHER SPECIFIED [Concomitant]
     Indication: HYPERTENSION
  4. MEDICATION NOT FURTHER SPECIFIED [Concomitant]
     Indication: ASTHMA
  5. LISINOPRIL [Concomitant]
     Dosage: 10 mg
  6. CARVEDILOL [Concomitant]
     Dosage: 6.25 mg
  7. FUROSEMIDE [Concomitant]
     Dosage: 40 mg

REACTIONS (2)
  - Duodenal ulcer haemorrhage [Recovered/Resolved]
  - Pallor [Unknown]
